FAERS Safety Report 6760626-7 (Version None)
Quarter: 2010Q2

REPORT INFORMATION
  Report Type: 
  Country: None (occurrence: None)
  Receive Date: 20100608
  Receipt Date: 20100601
  Transmission Date: 20101027
  Serious: Yes (Hospitalization)
  Sender: FDA-Public Use
  Company Number: US-PFIZER INC-2010068897

PATIENT
  Sex: Female
  Weight: 84 kg

DRUGS (1)
  1. XALATAN [Suspect]
     Indication: EYE DISORDER
     Dosage: UNK
     Route: 047

REACTIONS (1)
  - KNEE ARTHROPLASTY [None]
